FAERS Safety Report 5424571-1 (Version None)
Quarter: 2007Q3

REPORT INFORMATION
  Report Type: 
  Country: None (occurrence: None)
  Receive Date: 20070726
  Receipt Date: 20070402
  Transmission Date: 20080115
  Serious: No
  Sender: FDA-Public Use
  Company Number: POMP-10961

PATIENT
  Age: 35 Year
  Sex: Female
  Weight: 70.7611 kg

DRUGS (4)
  1. MYOZYME [Suspect]
     Indication: GLYCOGEN STORAGE DISEASE TYPE II
     Dosage: 20 MG/KG IV
     Route: 042
     Dates: start: 20060807
  2. MULTI-VITAMIN [Concomitant]
  3. CARNITOR [Concomitant]
  4. IBUPROFEN [Concomitant]

REACTIONS (2)
  - FEELING HOT [None]
  - MUSCULAR WEAKNESS [None]
